FAERS Safety Report 8215854-0 (Version None)
Quarter: 2012Q1

REPORT INFORMATION
  Report Type: 
  Country: None (occurrence: None)
  Receive Date: 20120316
  Receipt Date: 20120306
  Transmission Date: 20120608
  Serious: Yes (Hospitalization)
  Sender: FDA-Public Use
  Company Number: JP-MERCK-1203USA01210

PATIENT
  Sex: Male

DRUGS (10)
  1. GLUCOBAY [Concomitant]
     Indication: DIABETES MELLITUS
     Route: 048
  2. PLETAL [Concomitant]
     Route: 048
  3. PEPCID [Concomitant]
     Route: 048
  4. MUCOSTA [Concomitant]
     Route: 048
  5. ALLOPURINOL [Concomitant]
     Indication: HYPERURICAEMIA
     Route: 048
  6. METHYCOBAL [Concomitant]
     Route: 048
  7. JANUVIA [Suspect]
     Indication: DIABETES MELLITUS
     Route: 048
     Dates: start: 20120131, end: 20120213
  8. AMARYL [Concomitant]
     Indication: DIABETES MELLITUS
     Route: 048
  9. CRESTOR [Concomitant]
     Indication: DYSLIPIDAEMIA
     Route: 048
  10. SODIUM BICARBONATE [Concomitant]
     Route: 048

REACTIONS (1)
  - PYREXIA [None]
